FAERS Safety Report 17369382 (Version 1)
Quarter: 2020Q1

REPORT INFORMATION
  Report Type: Spontaneous
  Country: US (occurrence: US)
  Receive Date: 20200121
  Receipt Date: 20200121
  Transmission Date: 20200409
  Serious: No
  Sender: FDA-Public Use
  Company Number: None

PATIENT
  Sex: Female

DRUGS (1)
  1. TALTZ [Suspect]
     Active Substance: IXEKIZUMAB
     Indication: PSORIASIS
     Route: 058
     Dates: start: 20190609

REACTIONS (6)
  - Wrist surgery [None]
  - Nephropathy [None]
  - Muscle atrophy [None]
  - Removal of internal fixation [None]
  - Hypokinesia [None]
  - Injury [None]
